FAERS Safety Report 6111599-1 (Version None)
Quarter: 2009Q1

REPORT INFORMATION
  Report Type: 
  Country: None (occurrence: None)
  Receive Date: 20090311
  Receipt Date: 20090304
  Transmission Date: 20090719
  Serious: Yes (Hospitalization, Other)
  Sender: FDA-Public Use
  Company Number: US-MERCK-0902USA01643

PATIENT
  Age: 24 Month
  Sex: Male
  Weight: 24 kg

DRUGS (5)
  1. SINGULAIR [Suspect]
     Indication: ASTHMA
     Route: 048
     Dates: start: 20040205, end: 20090208
  2. SINGULAIR [Suspect]
     Indication: HYPERSENSITIVITY
     Route: 048
     Dates: start: 20040205, end: 20090208
  3. ABILIFY [Concomitant]
     Route: 065
  4. ZYRTEC [Concomitant]
     Indication: HYPERSENSITIVITY
     Route: 048
     Dates: start: 20040205
  5. ALBUTEROL [Concomitant]
     Route: 065

REACTIONS (7)
  - ABNORMAL BEHAVIOUR [None]
  - AGGRESSION [None]
  - AUTISM [None]
  - BIPOLAR DISORDER [None]
  - DEPRESSION [None]
  - OVERDOSE [None]
  - PHYSICAL ASSAULT [None]
